FAERS Safety Report 11739349 (Version 3)
Quarter: 2016Q1

REPORT INFORMATION
  Report Type: Spontaneous
  Country: None (occurrence: US)
  Receive Date: 20151113
  Receipt Date: 20160122
  Transmission Date: 20160525
  Serious: No
  Sender: FDA-Public Use
  Company Number: US-MATRIXX INITIATIVES, INC.-1044206

PATIENT
  Age: 74 Year
  Sex: Female
  Weight: 63.64 kg

DRUGS (2)
  1. ZICAM COLD REMEDY RAPIDMELTS [Suspect]
     Active Substance: ZINC ACETATE ANHYDROUS\ZINC GLUCONATE
     Indication: NASOPHARYNGITIS
     Route: 048
  2. UNSPECIFIED STATIN 10MG [Concomitant]

REACTIONS (3)
  - Anosmia [Not Recovered/Not Resolved]
  - Dysgeusia [Recovering/Resolving]
  - Dysgeusia [None]
